FAERS Safety Report 20455361 (Version 2)
Quarter: 2022Q3

REPORT INFORMATION
  Report Type: Spontaneous
  Country: JP (occurrence: JP)
  Receive Date: 20220210
  Receipt Date: 20220714
  Transmission Date: 20221027
  Serious: No
  Sender: FDA-Public Use
  Company Number: JP-GSKNCCC-Case-01414021_AE-54490

PATIENT

DRUGS (2)
  1. SOTROVIMAB [Suspect]
     Active Substance: SOTROVIMAB
     Dosage: UNK
     Dates: start: 20220202
  2. SOTROVIMAB [Suspect]
     Active Substance: SOTROVIMAB
     Dosage: ADMINISTER 500 MG DILUTED WITH 100 ML OF NORMAL SALINE AT THE SETTING TIME OF 30 MINUTES
     Route: 041
     Dates: start: 20220203, end: 20220203

REACTIONS (1)
  - Accidental overdose [Unknown]
